FAERS Safety Report 4399777-3 (Version None)
Quarter: 2004Q3

REPORT INFORMATION
  Report Type: 
  Country: None (occurrence: None)
  Receive Date: 20040714
  Receipt Date: 20040702
  Transmission Date: 20050211
  Serious: Yes (Hospitalization)
  Sender: FDA-Public Use
  Company Number: 04P-144-0265731-00

PATIENT
  Age: 26 Year
  Sex: Female

DRUGS (6)
  1. VALPROATE SODIUM [Suspect]
     Indication: AGGRESSION
     Dosage: 500 MG, 2 IN 1 D, PER ORAL
     Route: 048
     Dates: start: 20031111, end: 20031128
  2. OXCARBAPEZINE [Concomitant]
  3. RISPERIDONE [Concomitant]
  4. QUETIAPINE [Concomitant]
  5. TRAZODONE HYDROCHLORIDE [Concomitant]
  6. PAROXETINE HYDROCHORIDE [Concomitant]

REACTIONS (3)
  - ASTHENIA [None]
  - SLEEP APNOEA SYNDROME [None]
  - SOMNOLENCE [None]
